FAERS Safety Report 4638261-6 (Version None)
Quarter: 2005Q2

REPORT INFORMATION
  Report Type: 
  Country: None (occurrence: None)
  Receive Date: 20050415
  Receipt Date: 20041215
  Transmission Date: 20051028
  Serious: Yes (Life-Threatening)
  Sender: FDA-Public Use
  Company Number: 20041200511

PATIENT
  Age: 73 Year
  Sex: Female
  Weight: 70 kg

DRUGS (6)
  1. HEPARINE (HEPARIN) BAXTER [Suspect]
     Dates: start: 20041124
  2. TNK-TPA (TENECTEPLASE) [Suspect]
     Dates: start: 20041124
  3. ASPIRIN [Concomitant]
  4. TRIDIL [Concomitant]
  5. ATROPINE [Concomitant]
  6. DOPAMINE [Concomitant]

REACTIONS (8)
  - DYSPNOEA [None]
  - HAEMATOMA [None]
  - HYPOTENSION [None]
  - LOSS OF CONSCIOUSNESS [None]
  - NAUSEA [None]
  - OVERDOSE [None]
  - PUNCTURE SITE HAEMORRHAGE [None]
  - RESPIRATORY ARREST [None]
